FAERS Safety Report 4289735-1 (Version None)
Quarter: 2004Q1

REPORT INFORMATION
  Report Type: 
  Country: None (occurrence: None)
  Receive Date: 20040206
  Receipt Date: 20040126
  Transmission Date: 20041129
  Serious: Yes (Death, Hospitalization)
  Sender: FDA-Public Use
  Company Number: 04P-144-0248178-00

PATIENT
  Age: 36 Year
  Sex: Male

DRUGS (3)
  1. KALETRA [Suspect]
     Indication: HIV INFECTION
     Dosage: PER ORAL
     Route: 048
     Dates: start: 20021223
  2. STAVUDINE [Concomitant]
  3. LAMIVUDINE [Concomitant]

REACTIONS (2)
  - INFECTION [None]
  - PNEUMONIA [None]
